FAERS Safety Report 8394676-4 (Version None)
Quarter: 2012Q2

REPORT INFORMATION
  Report Type: 
  Country: None (occurrence: None)
  Receive Date: 20120525
  Receipt Date: 20120525
  Transmission Date: 20120825
  Serious: Yes (Life-Threatening)
  Sender: FDA-Public Use
  Company Number: None

PATIENT
  Age: 81 Year
  Sex: Male
  Weight: 81.1939 kg

DRUGS (1)
  1. LISINOPRIL [Suspect]
     Dosage: 20MG DIALY PO
     Route: 048

REACTIONS (1)
  - HYPOTENSION [None]
